FAERS Safety Report 5168084-3 (Version None)
Quarter: 2006Q4

REPORT INFORMATION
  Report Type: 
  Country: None (occurrence: None)
  Receive Date: 20061208
  Receipt Date: 20060927
  Transmission Date: 20070319
  Serious: No
  Sender: FDA-Public Use
  Company Number: US-GLAXOSMITHKLINE-A0621685A

PATIENT
  Age: 70 Year
  Sex: Female
  Weight: 75 kg

DRUGS (6)
  1. AVANDAMET [Suspect]
     Dosage: 1TAB TWICE PER DAY
     Route: 048
  2. AVANDIA [Suspect]
     Dosage: 4MG TWICE PER DAY
     Route: 048
  3. LEVOTHYROXINE SODIUM [Concomitant]
  4. GLIPIZIDE [Concomitant]
  5. ACEON [Concomitant]
  6. VYTORIN [Concomitant]

REACTIONS (2)
  - FLATULENCE [None]
  - SWELLING [None]
